FAERS Safety Report 7140970-4 (Version None)
Quarter: 2010Q4

REPORT INFORMATION
  Report Type: 
  Country: None (occurrence: None)
  Receive Date: 20101122
  Receipt Date: 20101104
  Transmission Date: 20110411
  Serious: Yes (Life-Threatening, Hospitalization, Other)
  Sender: FDA-Public Use
  Company Number: 20100445

PATIENT
  Age: 58 Year
  Sex: Male
  Weight: 81 kg

DRUGS (1)
  1. VENOFER [Suspect]
     Indication: RENAL FAILURE CHRONIC
     Dosage: 200 MG X 5 DOSES, TOTAL INTRAVENOUS BOLUS
     Route: 040
     Dates: start: 20100909, end: 20100909

REACTIONS (3)
  - ABDOMINAL DISCOMFORT [None]
  - INCORRECT DRUG ADMINISTRATION RATE [None]
  - MYOCARDIAL INFARCTION [None]
